FAERS Safety Report 20763316 (Version 1)
Quarter: 2022Q2

REPORT INFORMATION
  Report Type: Spontaneous
  Country: US (occurrence: None)
  Receive Date: 20220428
  Receipt Date: 20220428
  Transmission Date: 20220721
  Serious: No
  Sender: FDA-Public Use
  Company Number: None

PATIENT
  Sex: Male

DRUGS (1)
  1. TREMFYA [Suspect]
     Active Substance: GUSELKUMAB
     Indication: Psoriasis
     Dosage: UNKNOWN FREQUENCY
     Route: 058
     Dates: start: 202204

REACTIONS (3)
  - Wrong technique in device usage process [None]
  - Device defective [None]
  - Product leakage [None]
